FAERS Safety Report 4567280-3 (Version None)
Quarter: 2005Q1

REPORT INFORMATION
  Report Type: 
  Country: None (occurrence: None)
  Receive Date: 20050127
  Receipt Date: 20050117
  Transmission Date: 20050727
  Serious: Yes (Other)
  Sender: FDA-Public Use
  Company Number: HQWYE265428DEC04

PATIENT
  Age: 20 Year
  Sex: Female
  Weight: 44.95 kg

DRUGS (1)
  1. ALESSE [Suspect]
     Indication: CONTRACEPTION
     Dosage: 1 TABLET, ORAL
     Route: 048
     Dates: start: 20041114, end: 20041114

REACTIONS (12)
  - ASTHENIA [None]
  - BURNING SENSATION [None]
  - CHEST PAIN [None]
  - DYSPNOEA [None]
  - GENERALISED ERYTHEMA [None]
  - HYPERSENSITIVITY [None]
  - RASH MACULAR [None]
  - RASH PRURITIC [None]
  - SENSATION OF FOREIGN BODY [None]
  - TACHYCARDIA [None]
  - VOMITING [None]
  - WHEEZING [None]
